FAERS Safety Report 23300570 (Version 1)
Quarter: 2023Q4

REPORT INFORMATION
  Report Type: Report from Study
  Country: US (occurrence: US)
  Receive Date: 20231215
  Receipt Date: 20231215
  Transmission Date: 20240110
  Serious: No
  Sender: FDA-Public Use
  Company Number: US-AstraZeneca-CH-00527488A

PATIENT
  Sex: Male

DRUGS (1)
  1. STRENSIQ [Suspect]
     Active Substance: ASFOTASE ALFA
     Indication: Product used for unknown indication
     Dosage: UNK
     Route: 065

REACTIONS (9)
  - General physical condition abnormal [Unknown]
  - Dehydration [Unknown]
  - COVID-19 [Unknown]
  - Paraesthesia [Unknown]
  - Pain in extremity [Unknown]
  - Bone pain [Unknown]
  - Dysphonia [Unknown]
  - Fatigue [Unknown]
  - Asthenia [Unknown]
